FAERS Safety Report 14052684 (Version 2)
Quarter: 2017Q4

REPORT INFORMATION
  Report Type: Report from Study
  Country: US (occurrence: US)
  Receive Date: 20171006
  Receipt Date: 20171031
  Transmission Date: 20180321
  Serious: Yes (Death, Hospitalization)
  Sender: FDA-Public Use
  Company Number: US-BAYER-2017-115947

PATIENT
  Age: 80 Year
  Sex: Male

DRUGS (11)
  1. METOPROLOL SUCCINATE. [Concomitant]
     Active Substance: METOPROLOL SUCCINATE
     Dosage: 50 MG, QD
  2. ASPIRIN. [Concomitant]
     Active Substance: ASPIRIN
     Dosage: 81 MG
  3. DIPHENOXYLATE/ATROPINE [ATROPINE SULFATE,DIPHENOXYLATE HYDROCHLORI [Concomitant]
     Dosage: 2.5-0.025MG
  4. MEGACE [Concomitant]
     Active Substance: MEGESTROL ACETATE
     Dosage: 625MG/5ML
  5. HYDROCODONE W/ACETAMINOPHEN [Concomitant]
     Active Substance: ACETAMINOPHEN\HYDROCODONE BITARTRATE
     Dosage: 5-325MG
  6. DOXAZOSIN MESYLATE. [Concomitant]
     Active Substance: DOXAZOSIN MESYLATE
     Dosage: 2 MG
  7. STIVARGA [Suspect]
     Active Substance: REGORAFENIB
     Indication: HEPATOCELLULAR CARCINOMA
     Dosage: 160 MG DAILY
     Route: 048
     Dates: start: 20170525, end: 2017
  8. STIVARGA [Suspect]
     Active Substance: REGORAFENIB
     Indication: HEPATIC CANCER
     Dosage: 160 MG DAILY FOR 21 DAYS
     Route: 048
     Dates: start: 2017, end: 20171017
  9. TUSSIONEX PENNKINETIC [Concomitant]
     Active Substance: CHLORPHENIRAMINE\HYDROCODONE
     Dosage: 10-8 MG/5ML
  10. QUESTRAN [Concomitant]
     Active Substance: CHOLESTYRAMINE
     Dosage: 4 GM
  11. LACTULOSE. [Concomitant]
     Active Substance: LACTULOSE
     Dosage: 10MG/15ML

REACTIONS (4)
  - Clostridium difficile infection [Recovered/Resolved]
  - Diarrhoea [Not Recovered/Not Resolved]
  - Death [Fatal]
  - Diarrhoea [None]

NARRATIVE: CASE EVENT DATE: 20170605
